FAERS Safety Report 9475662 (Version 1)
Quarter: 2013Q3

REPORT INFORMATION
  Report Type: Spontaneous
  Country: US (occurrence: None)
  Receive Date: 20130822
  Receipt Date: 20130822
  Transmission Date: 20140515
  Serious: No
  Sender: FDA-Public Use
  Company Number: None

PATIENT
  Age: 59 Year
  Sex: Female
  Weight: 104.55 kg

DRUGS (14)
  1. 5-FLUOROURACIL (5-FU) [Suspect]
  2. BEVACIZUMAB [Suspect]
  3. LEUCOVORIN CALCIUM [Suspect]
  4. OXALIPLATIN (ELOXATIN) [Suspect]
  5. ACETAMINOPHEN-HYDROCODONE BITARTRATE [Concomitant]
  6. ALBUTEROL INHALER [Concomitant]
  7. COMPAZINE [Concomitant]
  8. GABAPENTIN [Concomitant]
  9. LIPITOR [Concomitant]
  10. LOSARTAN/HYDROCHLOROTHIAZIDE [Concomitant]
  11. POTASSIUM CHLORIDE [Concomitant]
  12. SUMATRIPTAN SUCCINATE [Concomitant]
  13. SYNTHROID [Concomitant]
  14. ZOFRAN [Concomitant]

REACTIONS (5)
  - Neuralgia [None]
  - Pallor [None]
  - Malaise [None]
  - Fall [None]
  - Orthostatic hypotension [None]
